FAERS Safety Report 10268454 (Version 1)
Quarter: 2014Q2

REPORT INFORMATION
  Report Type: Spontaneous
  Country: IT (occurrence: IT)
  Receive Date: 20140630
  Receipt Date: 20140630
  Transmission Date: 20141212
  Serious: Yes (Hospitalization)
  Sender: FDA-Public Use
  Company Number: IT-BRISTOL-MYERS SQUIBB COMPANY-21071030

PATIENT
  Age: 81 Year
  Sex: Male

DRUGS (7)
  1. COUMADIN TABS 5 MG [Suspect]
     Indication: ATRIAL FIBRILLATION
     Dosage: 1 DF : 1 UNITS
     Route: 048
     Dates: start: 20140117, end: 20140124
  2. APIDRA [Concomitant]
     Dosage: 100 U/ML INJECTION SOLUTION
     Route: 058
  3. LANTUS [Concomitant]
     Dosage: 100 IU/ML INJECTION SOLUTION
     Route: 058
  4. ESKIM [Concomitant]
     Route: 048
  5. CONGESCOR [Concomitant]
     Dosage: TABS
     Route: 048
  6. ZYLORIC [Concomitant]
     Route: 048
  7. MINITRANS PATCH [Concomitant]

REACTIONS (2)
  - Cardiac failure [Unknown]
  - Overdose [Unknown]
